FAERS Safety Report 14416822 (Version 1)
Quarter: 2018Q1

REPORT INFORMATION
  Report Type: Spontaneous
  Country: US (occurrence: US)
  Receive Date: 20180119
  Receipt Date: 20180119
  Transmission Date: 20180509
  Serious: Yes (Death, Hospitalization)
  Sender: FDA-Public Use
  Company Number: None

PATIENT
  Age: 50 Year
  Sex: Male

DRUGS (17)
  1. AMIODARONE [Concomitant]
     Active Substance: AMIODARONE
  2. EPINEPHRINE. [Concomitant]
     Active Substance: EPINEPHRINE
  3. CHLORHEXADINE [Concomitant]
     Active Substance: CHLORHEXIDINE
  4. NOREPINEPHRINE. [Concomitant]
     Active Substance: NOREPINEPHRINE
  5. PROPOFOL. [Suspect]
     Active Substance: PROPOFOL
     Indication: SEDATION
     Dosage: 5-80 MCG/KG/MIN CONTINUOUS IV
     Route: 042
     Dates: start: 20170807, end: 20170809
  6. ASPIRIN. [Concomitant]
     Active Substance: ASPIRIN
  7. HEPARIN [Concomitant]
     Active Substance: HEPARIN SODIUM
  8. POLYETHYLENE GLYCOL 3350. [Concomitant]
     Active Substance: POLYETHYLENE GLYCOL 3350
  9. PANTOPRAZOLE [Concomitant]
     Active Substance: PANTOPRAZOLE
  10. POTASSIUM CHLORIDE. [Concomitant]
     Active Substance: POTASSIUM CHLORIDE
  11. FACTOR VIII [Concomitant]
     Active Substance: ANTIHEMOPHILIC FACTOR HUMAN
  12. VASOPRESSIN. [Concomitant]
     Active Substance: VASOPRESSIN
  13. ATORVASTATIN [Concomitant]
     Active Substance: ATORVASTATIN
  14. CEFEPIME [Concomitant]
     Active Substance: CEFEPIME HYDROCHLORIDE
  15. FENTANYL. [Concomitant]
     Active Substance: FENTANYL
  16. INSULIN [Concomitant]
     Active Substance: INSULIN NOS
  17. LORAZEPAM. [Concomitant]
     Active Substance: LORAZEPAM

REACTIONS (1)
  - Blood triglycerides increased [None]

NARRATIVE: CASE EVENT DATE: 20170809
